FAERS Safety Report 9951269 (Version 1)
Quarter: 2014Q1

REPORT INFORMATION
  Report Type: Spontaneous
  Country: US (occurrence: US)
  Receive Date: 20140304
  Receipt Date: 20140304
  Transmission Date: 20141002
  Serious: Yes (Hospitalization, Other)
  Sender: FDA-Public Use
  Company Number: US-BAXTER-2014BAX009518

PATIENT
  Sex: Male

DRUGS (1)
  1. CEFAZOLIN INJECTION [Suspect]
     Indication: OSTEOMYELITIS CHRONIC
     Route: 042
     Dates: start: 201402

REACTIONS (2)
  - Abdominal pain [Unknown]
  - Muscle spasms [Unknown]
